FAERS Safety Report 24022872 (Version 5)
Quarter: 2024Q3

REPORT INFORMATION
  Report Type: Report from Study
  Country: CN (occurrence: CN)
  Receive Date: 20240627
  Receipt Date: 20240710
  Transmission Date: 20241016
  Serious: No
  Sender: ROCHE
  Company Number: CN-ROCHE-3050557

PATIENT
  Age: 42 Year
  Sex: Female
  Weight: 74.0 kg

DRUGS (22)
  1. ALECTINIB [Suspect]
     Active Substance: ALECTINIB
     Indication: Lung cancer metastatic
     Route: 048
     Dates: start: 20210910
  2. ALECTINIB [Suspect]
     Active Substance: ALECTINIB
     Route: 065
     Dates: start: 20201001
  3. URSODIOL [Concomitant]
     Active Substance: URSODIOL
     Indication: Blood bilirubin increased
     Route: 048
     Dates: start: 20210908
  4. URSODIOL [Concomitant]
     Active Substance: URSODIOL
     Route: 048
     Dates: start: 20230611
  5. MAGNESIUM ISOGLYCYRRHIZINATE [Concomitant]
     Active Substance: MAGNESIUM ISOGLYCYRRHIZINATE
     Indication: Aspartate aminotransferase increased
     Route: 050
     Dates: start: 20220427, end: 20220428
  6. MAGNESIUM ISOGLYCYRRHIZINATE [Concomitant]
     Active Substance: MAGNESIUM ISOGLYCYRRHIZINATE
     Indication: Alanine aminotransferase increased
     Route: 042
     Dates: start: 20220928, end: 20220929
  7. CEFDINIR [Concomitant]
     Active Substance: CEFDINIR
     Dosage: SYMPTOMATIC TREATMENT OF PULMONARY INFLAMMATORY NODULES
     Route: 048
     Dates: start: 20220818, end: 20220820
  8. MANNATIDE [Concomitant]
     Route: 042
     Dates: start: 20230107, end: 20230111
  9. MANNATIDE [Concomitant]
     Route: 042
     Dates: start: 20230516, end: 20230520
  10. MANNATIDE [Concomitant]
     Route: 042
     Dates: start: 20230608, end: 20230610
  11. MANNATIDE [Concomitant]
     Route: 042
     Dates: start: 20230630, end: 20230705
  12. MANNATIDE [Concomitant]
     Route: 042
     Dates: start: 20230727, end: 20230729
  13. MANNATIDE [Concomitant]
     Route: 042
     Dates: start: 20230214, end: 20230217
  14. MANNATIDE [Concomitant]
     Route: 042
     Dates: start: 20230403, end: 20230407
  15. MANNATIDE [Concomitant]
     Route: 042
     Dates: start: 20230424, end: 20230426
  16. MANNATIDE [Concomitant]
     Dosage: ADJUVANT IMMUNOENHANCEMENT THERAPY
     Route: 042
     Dates: start: 20221129, end: 20221201
  17. FLUCONAZOLE [Concomitant]
     Active Substance: FLUCONAZOLE
     Route: 048
     Dates: start: 20230108, end: 202302
  18. FLUCONAZOLE [Concomitant]
     Active Substance: FLUCONAZOLE
     Route: 048
     Dates: start: 20230427, end: 202305
  19. ACETYLCYSTEINE [Concomitant]
     Active Substance: ACETYLCYSTEINE
     Route: 048
     Dates: start: 20230108, end: 202302
  20. SODIUM CHLORIDE [Concomitant]
     Active Substance: SODIUM CHLORIDE
     Route: 042
     Dates: start: 20230425, end: 20230426
  21. HERBALS\DIAMMONIUM GLYCYRRHIZINATE [Concomitant]
     Active Substance: HERBALS\DIAMMONIUM GLYCYRRHIZINATE
     Route: 048
     Dates: start: 20230705, end: 202307
  22. SPLEEN POLYPEPTIDE [Concomitant]
     Route: 042
     Dates: start: 20220927, end: 20220929

REACTIONS (4)
  - Cholelithiasis [Not Recovered/Not Resolved]
  - Aspartate aminotransferase increased [Recovered/Resolved]
  - Anaemia [Not Recovered/Not Resolved]
  - Alanine aminotransferase increased [Recovered/Resolved]

NARRATIVE: CASE EVENT DATE: 20220302
